FAERS Safety Report 11613716 (Version 7)
Quarter: 2016Q3

REPORT INFORMATION
  Report Type: Report from Study
  Country: BR (occurrence: BR)
  Receive Date: 20151008
  Receipt Date: 20160822
  Transmission Date: 20161109
  Serious: Yes (Hospitalization)
  Sender: FDA-Public Use
  Company Number: PHHY2015BR120101

PATIENT
  Sex: Female
  Weight: 73 kg

DRUGS (2)
  1. EXJADE [Suspect]
     Active Substance: DEFERASIROX
     Indication: SICKLE CELL ANAEMIA
     Dosage: 25 MG/KG, QD (3 DF OF 500 MG AND 1 DF OF 250 MG)
     Route: 048
     Dates: start: 2012
  2. HYDREA [Suspect]
     Active Substance: HYDROXYUREA
     Indication: PRODUCT USED FOR UNKNOWN INDICATION
     Route: 065

REACTIONS (16)
  - Muscular weakness [Unknown]
  - Drug ineffective [Unknown]
  - Weight decreased [Unknown]
  - Abdominal distension [Recovering/Resolving]
  - Sleep disorder due to general medical condition, insomnia type [Unknown]
  - Visual acuity reduced [Unknown]
  - Malaise [Unknown]
  - Hypokinesia [Unknown]
  - Bone pain [Unknown]
  - Oedema peripheral [Not Recovered/Not Resolved]
  - Serum ferritin increased [Unknown]
  - Atrophy [Unknown]
  - Blood pressure increased [Unknown]
  - Gait disturbance [Unknown]
  - Erythema [Unknown]
  - Swelling [Unknown]
